FAERS Safety Report 23697706 (Version 1)
Quarter: 2024Q2

REPORT INFORMATION
  Report Type: Spontaneous
  Country: US (occurrence: None)
  Receive Date: 20240401
  Receipt Date: 20240401
  Transmission Date: 20240716
  Serious: No
  Sender: FDA-Public Use
  Company Number: None

PATIENT

DRUGS (1)
  1. ANAKINRA [Suspect]
     Active Substance: ANAKINRA

REACTIONS (5)
  - Product complaint [None]
  - Device safety feature issue [None]
  - Injury associated with device [None]
  - Medication error [None]
  - Wrong technique in device usage process [None]
